FAERS Safety Report 12859502 (Version 4)
Quarter: 2016Q4

REPORT INFORMATION
  Report Type: Spontaneous
  Country: US (occurrence: US)
  Receive Date: 20161018
  Receipt Date: 20161206
  Transmission Date: 20170207
  Serious: Yes (Other)
  Sender: FDA-Public Use
  Company Number: US-LUNDBECK-DKLU2021007

PATIENT
  Sex: Male

DRUGS (5)
  1. NORTHERA [Suspect]
     Active Substance: DROXIDOPA
     Route: 048
  2. NORTHERA [Suspect]
     Active Substance: DROXIDOPA
     Route: 048
  3. NORTHERA [Suspect]
     Active Substance: DROXIDOPA
     Indication: ORTHOSTATIC HYPOTENSION
     Route: 048
     Dates: start: 201409
  4. NORTHERA [Suspect]
     Active Substance: DROXIDOPA
     Route: 048
  5. NORTHERA [Suspect]
     Active Substance: DROXIDOPA
     Route: 048
     Dates: start: 201409

REACTIONS (6)
  - Orthostatic hypotension [Unknown]
  - Condition aggravated [Unknown]
  - Blood pressure increased [Unknown]
  - Amyloidosis [Unknown]
  - Dizziness [Unknown]
  - Drug dose omission [Recovering/Resolving]
